FAERS Safety Report 9165740 (Version 2)
Quarter: 2013Q2

REPORT INFORMATION
  Report Type: Spontaneous
  Country: US (occurrence: None)
  Receive Date: 20130227
  Receipt Date: 20130619
  Transmission Date: 20140414
  Serious: Yes (Hospitalization)
  Sender: FDA-Public Use
  Company Number: TCI2013A00927

PATIENT
  Age: 76 Year
  Sex: Male

DRUGS (1)
  1. NESINA [Suspect]
     Indication: DIABETES MELLITUS
     Route: 048
     Dates: end: 20121115

REACTIONS (2)
  - Pancreatitis acute [None]
  - Depressed level of consciousness [None]
